FAERS Safety Report 22613687 (Version 1)
Quarter: 2023Q2

REPORT INFORMATION
  Report Type: Spontaneous
  Country: CA (occurrence: CA)
  Receive Date: 20230619
  Receipt Date: 20230619
  Transmission Date: 20230722
  Serious: Yes (Death)
  Sender: FDA-Public Use
  Company Number: CA-ORGANON-O2306CAN002039

PATIENT
  Age: 48 Year
  Sex: Female

DRUGS (5)
  1. REMERON [Interacting]
     Active Substance: MIRTAZAPINE
     Dosage: UNK
     Route: 065
  2. CLONAZEPAM [Interacting]
     Active Substance: CLONAZEPAM
     Dosage: UNK
     Route: 065
  3. GABAPENTIN [Interacting]
     Active Substance: GABAPENTIN
     Dosage: UNK,(DOSAGE FORM: NOT SPECIFIED)
     Route: 065
  4. OLANZAPINE [Interacting]
     Active Substance: OLANZAPINE
     Dosage: UNK,(DOSAGE FORM:NOT SPECIFIED)
     Route: 065
  5. VENLAFAXINE HYDROCHLORIDE [Interacting]
     Active Substance: VENLAFAXINE HYDROCHLORIDE
     Dosage: UNK
     Route: 065

REACTIONS (3)
  - Accidental death [Fatal]
  - Arrhythmia [Fatal]
  - Drug interaction [Fatal]
